FAERS Safety Report 18215454 (Version 1)
Quarter: 2020Q3

REPORT INFORMATION
  Report Type: Spontaneous
  Country: US (occurrence: US)
  Receive Date: 20200831
  Receipt Date: 20200831
  Transmission Date: 20201103
  Serious: Yes (Life-Threatening, Hospitalization)
  Sender: FDA-Public Use
  Company Number: US-COEPTIS PHARMACEUTICALS, INC.-COE-2020-000021

PATIENT
  Age: 51 Year
  Sex: Male
  Weight: 100 kg

DRUGS (6)
  1. DEXTROSE. [Suspect]
     Active Substance: DEXTROSE
     Indication: OVERDOSE
     Dosage: INITIALLY 150 ML OF 50% DEXTROSE INFUSION
     Route: 042
  2. AMLODIPINE [Suspect]
     Active Substance: AMLODIPINE BESYLATE
     Dosage: 40 TABLETS OF AN UNCERTAIN MIX OF 25 MG METOPROLOL TARTRATE 5 MG AMLODIPINE
  3. HIGH DOSE INSULIN [Suspect]
     Active Substance: INSULIN NOS
     Indication: INTENTIONAL OVERDOSE
     Dosage: 10 UNIT/KG/HR
  4. METOPROLOL TARTRATE. [Suspect]
     Active Substance: METOPROLOL TARTRATE
     Dosage: 40 TABLETS OF AN UNCERTAIN MIX OF 25 MG METOPROLOL TARTRATE 5 MG AMLODIPINE
  5. DEXTROSE. [Suspect]
     Active Substance: DEXTROSE
     Dosage: TITRATED DOWN TO 75 ML/HR IN 25 ML/HR INCREMENTS EVERY 2 HOURS
     Route: 042
  6. DEXTROSE. [Suspect]
     Active Substance: DEXTROSE
     Dosage: FOR THE REMAINDER OF THE HDI THERAPY COURSE, 50% DEXTROSE WAS INFUSED AT RATES BETWEEN 50 AND 75 ML/
     Route: 042

REACTIONS (10)
  - Vomiting [Recovered/Resolved]
  - Hypomagnesaemia [Recovered/Resolved]
  - Depressed level of consciousness [Recovered/Resolved]
  - Hyperinsulinaemia [Recovered/Resolved]
  - Intentional overdose [Recovered/Resolved]
  - Bradycardia [Recovered/Resolved]
  - Hypotension [Recovered/Resolved]
  - Hypokalaemia [Recovered/Resolved]
  - Shock [Recovered/Resolved]
  - Blood creatinine increased [Recovered/Resolved]
